FAERS Safety Report 15332107 (Version 1)
Quarter: 2018Q3

REPORT INFORMATION
  Report Type: Spontaneous
  Country: DK (occurrence: DK)
  Receive Date: 20180829
  Receipt Date: 20180829
  Transmission Date: 20181010
  Serious: Yes (Life-Threatening, Hospitalization)
  Sender: FDA-Public Use
  Company Number: PHHY2018DK083382

PATIENT
  Age: 74 Year
  Sex: Male

DRUGS (1)
  1. ENALAPRIL SANDOZ [Suspect]
     Active Substance: ENALAPRIL
     Indication: HYPERTENSION
     Dosage: 10 MG, QD (STYRKE: 5 MG)
     Route: 048
     Dates: start: 20160817, end: 20180716

REACTIONS (4)
  - Hyperkalaemia [Unknown]
  - Renal impairment [Unknown]
  - Fall [Unknown]
  - Hyponatraemia [Unknown]

NARRATIVE: CASE EVENT DATE: 20180711
